FAERS Safety Report 4493822-2 (Version None)
Quarter: 2004Q4

REPORT INFORMATION
  Report Type: 
  Country: None (occurrence: None)
  Receive Date: 20041102
  Receipt Date: 20041020
  Transmission Date: 20050328
  Serious: Yes (Other)
  Sender: FDA-Public Use
  Company Number: A03200403525

PATIENT
  Sex: Female

DRUGS (4)
  1. ELOXATIN [Suspect]
     Route: 042
  2. FLUOROURACIL [Concomitant]
  3. LEUCOVORIN [Concomitant]
  4. BEVACIZUMAB [Concomitant]

REACTIONS (1)
  - CARDIAC FAILURE CONGESTIVE [None]
